FAERS Safety Report 12657968 (Version 1)
Quarter: 2016Q3

REPORT INFORMATION
  Report Type: Report from Study
  Country: US (occurrence: US)
  Receive Date: 20160817
  Receipt Date: 20160817
  Transmission Date: 20161109
  Serious: Yes (Hospitalization, Other)
  Sender: FDA-Public Use
  Company Number: PHEH2016US020167

PATIENT
  Sex: Female

DRUGS (1)
  1. AFINITOR [Suspect]
     Active Substance: EVEROLIMUS
     Indication: NEOPLASM MALIGNANT
     Dosage: 5 MG, UNK
     Route: 065

REACTIONS (5)
  - Wound infection staphylococcal [Unknown]
  - Cell marker increased [Unknown]
  - Metastases to large intestine [Unknown]
  - Mental disorder [Unknown]
  - Nervousness [Unknown]
